FAERS Safety Report 21786373 (Version 2)
Quarter: 2023Q1

REPORT INFORMATION
  Report Type: Report from Study
  Country: US (occurrence: US)
  Receive Date: 20221228
  Receipt Date: 20230104
  Transmission Date: 20230417
  Serious: No
  Sender: FDA-Public Use
  Company Number: US-BRISTOL-MYERS SQUIBB COMPANY-2022-159577

PATIENT
  Age: 63 Year
  Sex: Male

DRUGS (2)
  1. MAVACAMTEN [Suspect]
     Active Substance: MAVACAMTEN
     Indication: Hypertrophic cardiomyopathy
     Route: 048
     Dates: start: 20221125
  2. MAVACAMTEN [Suspect]
     Active Substance: MAVACAMTEN
     Route: 048

REACTIONS (1)
  - Product dose omission issue [Unknown]
